FAERS Safety Report 14734060 (Version 1)
Quarter: 2018Q2

REPORT INFORMATION
  Report Type: Spontaneous
  Country: US (occurrence: US)
  Receive Date: 20180403
  Receipt Date: 20180403
  Transmission Date: 20180711
  Serious: Yes (Hospitalization)
  Sender: FDA-Public Use
  Company Number: None

PATIENT
  Age: 58 Year
  Sex: Female

DRUGS (21)
  1. HYDROXYZINE [Concomitant]
     Active Substance: HYDROXYZINE HYDROCHLORIDE
  2. TESSALON [Concomitant]
     Active Substance: BENZONATATE
  3. ZOFRAN [Concomitant]
     Active Substance: ONDANSETRON HYDROCHLORIDE
  4. PEPCID [Concomitant]
     Active Substance: FAMOTIDINE
  5. COMBIVENT [Concomitant]
     Active Substance: ALBUTEROL SULFATE\IPRATROPIUM BROMIDE
  6. XDTAB [Concomitant]
  7. ALBUTEROL. [Concomitant]
     Active Substance: ALBUTEROL
  8. LETAIRIS [Suspect]
     Active Substance: AMBRISENTAN
     Indication: PULMONARY ARTERIAL HYPERTENSION
     Route: 048
     Dates: start: 201712
  9. REMODULIN [Concomitant]
     Active Substance: TREPROSTINIL
  10. ULTRAM [Concomitant]
     Active Substance: TRAMADOL HYDROCHLORIDE
  11. MOTRIN [Concomitant]
     Active Substance: IBUPROFEN
  12. HALDOL [Concomitant]
     Active Substance: HALOPERIDOL
  13. LOMOTIL [Concomitant]
     Active Substance: ATROPINE SULFATE\DIPHENOXYLATE HYDROCHLORIDE
  14. LORATADINE. [Concomitant]
     Active Substance: LORATADINE
  15. DIGOXIN. [Concomitant]
     Active Substance: DIGOXIN
  16. TEMAZEPAM. [Concomitant]
     Active Substance: TEMAZEPAM
  17. FLONASE [Concomitant]
     Active Substance: FLUTICASONE PROPIONATE
  18. REMERON [Concomitant]
     Active Substance: MIRTAZAPINE
  19. SYMBICORT HFA [Concomitant]
  20. MARINOL [Concomitant]
     Active Substance: DRONABINOL
  21. DEMADEX [Concomitant]
     Active Substance: TORSEMIDE

REACTIONS (3)
  - Vomiting [None]
  - Diarrhoea [None]
  - Nausea [None]

NARRATIVE: CASE EVENT DATE: 20180317
